FAERS Safety Report 7820037-X (Version None)
Quarter: 2011Q4

REPORT INFORMATION
  Report Type: 
  Country: None (occurrence: None)
  Receive Date: 20111018
  Receipt Date: 20111010
  Transmission Date: 20120403
  Serious: Yes (Hospitalization, Other)
  Sender: FDA-Public Use
  Company Number: PHFR2011GB04039

PATIENT
  Sex: Female
  Weight: 143 kg

DRUGS (2)
  1. HYOSCINE HYDROBROMIDE [Concomitant]
     Indication: SALIVARY HYPERSECRETION
     Dosage: 300 UG/DAY
     Route: 048
     Dates: start: 20110622
  2. CLOZARIL [Suspect]
     Indication: SCHIZOPHRENIA
     Dosage: 300 MG/DAY
     Route: 048
     Dates: start: 20110607, end: 20110704

REACTIONS (20)
  - GASTROINTESTINAL INFLAMMATION [None]
  - LETHARGY [None]
  - COLD SWEAT [None]
  - ASPARTATE AMINOTRANSFERASE INCREASED [None]
  - BLOOD ALKALINE PHOSPHATASE INCREASED [None]
  - PAIN IN EXTREMITY [None]
  - PYREXIA [None]
  - TACHYCARDIA [None]
  - SEPSIS [None]
  - MALAISE [None]
  - PALLOR [None]
  - C-REACTIVE PROTEIN INCREASED [None]
  - DIZZINESS POSTURAL [None]
  - GAMMA-GLUTAMYLTRANSFERASE INCREASED [None]
  - INFLUENZA LIKE ILLNESS [None]
  - MYOCARDITIS [None]
  - ALANINE AMINOTRANSFERASE INCREASED [None]
  - RESPIRATORY RATE INCREASED [None]
  - DYSPNOEA [None]
  - HEPATITIS [None]
